FAERS Safety Report 18277218 (Version 1)
Quarter: 2020Q3

REPORT INFORMATION
  Report Type: Spontaneous
  Country: GB (occurrence: GB)
  Receive Date: 20200917
  Receipt Date: 20200917
  Transmission Date: 20201103
  Serious: Yes (Other)
  Sender: FDA-Public Use
  Company Number: GB-GLAXOSMITHKLINE-GB2020181271

PATIENT
  Sex: Male

DRUGS (3)
  1. VOLTAREN [Suspect]
     Active Substance: DICLOFENAC SODIUM
     Indication: DISCOMFORT
     Dosage: UNK
  2. WARFARIN [Concomitant]
     Active Substance: WARFARIN
     Indication: PRODUCT USED FOR UNKNOWN INDICATION
     Dosage: UNK
  3. VOLTAREN [Suspect]
     Active Substance: DICLOFENAC SODIUM
     Indication: PATELLA FRACTURE

REACTIONS (3)
  - Product use issue [Unknown]
  - Drug dependence [Unknown]
  - Cardiac pacemaker insertion [Unknown]
